FAERS Safety Report 15386257 (Version 2)
Quarter: 2019Q1

REPORT INFORMATION
  Report Type: Spontaneous
  Country: US (occurrence: US)
  Receive Date: 20180914
  Receipt Date: 20190110
  Transmission Date: 20190417
  Serious: Yes (Hospitalization, Other)
  Sender: FDA-Public Use
  Company Number: US-SAKK-2018SA254065AA

PATIENT
  Age: 6 Year
  Sex: Male
  Weight: 34.2 kg

DRUGS (15)
  1. CEREBYX [Concomitant]
     Active Substance: FOSPHENYTOIN SODIUM
  2. REGLAN [Concomitant]
     Active Substance: METOCLOPRAMIDE HYDROCHLORIDE
  3. DILANTIN [PHENYTOIN] [Concomitant]
  4. ONFI [Concomitant]
     Active Substance: CLOBAZAM
  5. VALIUM [Concomitant]
     Active Substance: DIAZEPAM
  6. OMEPRAZOLE. [Concomitant]
     Active Substance: OMEPRAZOLE
  7. CEREZYME [Suspect]
     Active Substance: IMIGLUCERASE
     Dosage: UNK
     Route: 041
  8. CATAPRES [CLONIDINE] [Concomitant]
  9. DIASTAT ACUDIAL [Concomitant]
     Active Substance: DIAZEPAM
  10. ATROVENT [Concomitant]
     Active Substance: IPRATROPIUM BROMIDE
  11. PULMICORT TURBUHALER [Concomitant]
     Active Substance: BUDESONIDE
  12. CEREZYME [Suspect]
     Active Substance: IMIGLUCERASE
     Indication: GAUCHER^S DISEASE TYPE II
     Dosage: 60 IU/KG
     Route: 041
     Dates: start: 2013
  13. PHENOBARBITAL. [Concomitant]
     Active Substance: PHENOBARBITAL
  14. PEPTAMEN JUNIOR [Concomitant]
     Active Substance: DIETARY SUPPLEMENT
  15. XOPENEX HFA [Concomitant]
     Active Substance: LEVALBUTEROL TARTRATE

REACTIONS (4)
  - Mobility decreased [Unknown]
  - Upper respiratory tract infection [Unknown]
  - Weight increased [Unknown]
  - Seizure [Recovered/Resolved]

NARRATIVE: CASE EVENT DATE: 20180815
